FAERS Safety Report 5642593-2 (Version None)
Quarter: 2008Q1

REPORT INFORMATION
  Report Type: 
  Country: None (occurrence: None)
  Receive Date: 20080227
  Receipt Date: 20080227
  Transmission Date: 20080703
  Serious: Yes (Hospitalization)
  Sender: FDA-Public Use
  Company Number: None

PATIENT
  Sex: Female
  Weight: 72.5755 kg

DRUGS (8)
  1. ATIVAN [Suspect]
     Dosage: 1MG PO  (THERAPY DATES: PRIOR TO ADMISSION)
     Route: 048
  2. PERCOCET [Suspect]
     Dosage: 10/325MG PO,  (THERAPY DATES: PRIOR TO ADMISSION)
     Route: 048
  3. CIPRO [Concomitant]
  4. ATENOLOL [Concomitant]
  5. LEVOTHYROXINE SODIUM [Concomitant]
  6. QUINAPRIL HCL [Concomitant]
  7. MIRAPEX [Concomitant]
  8. LIDODERM [Concomitant]

REACTIONS (2)
  - CONFUSIONAL STATE [None]
  - MENTAL STATUS CHANGES [None]
